FAERS Safety Report 6562764-0 (Version None)
Quarter: 2010Q1

REPORT INFORMATION
  Report Type: 
  Country: None (occurrence: None)
  Receive Date: 20100130
  Receipt Date: 20091118
  Transmission Date: 20100710
  Serious: No
  Sender: FDA-Public Use
  Company Number: US-ABBOTT-09P-163-0610288-00

PATIENT
  Sex: Female

DRUGS (5)
  1. HUMIRA [Suspect]
     Indication: RHEUMATOID ARTHRITIS
     Route: 058
     Dates: start: 20090925, end: 20091001
  2. HUMIRA [Suspect]
     Route: 058
     Dates: start: 20091119
  3. PREDNISONE [Concomitant]
     Indication: RHEUMATOID ARTHRITIS
  4. DICLOFENAC [Concomitant]
     Indication: RHEUMATOID ARTHRITIS
  5. BUPROPION HCL [Concomitant]
     Indication: DEPRESSION

REACTIONS (3)
  - HYPOTHYROIDISM [None]
  - PNEUMONIA [None]
  - SINUSITIS [None]
